FAERS Safety Report 7322048-X (Version None)
Quarter: 2011Q1

REPORT INFORMATION
  Report Type: 
  Country: None (occurrence: None)
  Receive Date: 20110228
  Receipt Date: 20110221
  Transmission Date: 20110831
  Serious: Yes (Hospitalization)
  Sender: FDA-Public Use
  Company Number: US-ABBOTT-11P-163-0706300-00

PATIENT
  Sex: Female
  Weight: 61.29 kg

DRUGS (5)
  1. PREDNISONE [Concomitant]
     Indication: CROHN'S DISEASE
  2. HUMIRA [Suspect]
     Indication: CROHN'S DISEASE
     Dates: start: 20100601
  3. ASACOL [Concomitant]
     Indication: CROHN'S DISEASE
  4. IMURAN [Concomitant]
     Indication: CROHN'S DISEASE
  5. UNKNOWN VITAMIN [Concomitant]
     Indication: VITAMIN SUPPLEMENTATION

REACTIONS (14)
  - NASOPHARYNGITIS [None]
  - VOMITING [None]
  - INFUSION SITE INFECTION [None]
  - HAEMOGLOBIN DECREASED [None]
  - BLOOD POTASSIUM DECREASED [None]
  - HAEMORRHAGE [None]
  - HAEMATOCRIT DECREASED [None]
  - CROHN'S DISEASE [None]
  - WRONG TECHNIQUE IN DRUG USAGE PROCESS [None]
  - NAUSEA [None]
  - THROMBOSIS [None]
  - RECTAL HAEMORRHAGE [None]
  - HAEMATOCHEZIA [None]
  - BLOOD SODIUM DECREASED [None]
